FAERS Safety Report 20919988 (Version 1)
Quarter: 2022Q2

REPORT INFORMATION
  Report Type: Spontaneous
  Country: US (occurrence: None)
  Receive Date: 20220604
  Receipt Date: 20220604
  Transmission Date: 20220721
  Serious: Yes (Hospitalization)
  Sender: FDA-Public Use
  Company Number: None

PATIENT
  Age: 21 Year
  Sex: Male
  Weight: 117 kg

DRUGS (13)
  1. CYCLOPHOSPHAMIDE [Suspect]
     Active Substance: CYCLOPHOSPHAMIDE
     Dates: end: 20220426
  2. CYTARABINE [Suspect]
     Active Substance: CYTARABINE
     Dates: end: 20220505
  3. MERCAPTOPURINE [Suspect]
     Active Substance: MERCAPTOPURINE
     Dates: end: 20220518
  4. METHOTREXATE [Suspect]
     Active Substance: METHOTREXATE
     Dates: end: 20220420
  5. ONCASPAR [Suspect]
     Active Substance: PEGASPARGASE
     Dates: end: 20220527
  6. VINCRISTINE SULFATE [Suspect]
     Active Substance: VINCRISTINE SULFATE
     Dates: end: 20220516
  7. URSODIOL [Concomitant]
     Active Substance: URSODIOL
  8. ACYCLOVIR [Concomitant]
     Active Substance: ACYCLOVIR
  9. FLUCONAZOLE [Concomitant]
     Active Substance: FLUCONAZOLE
  10. METFORMIN [Concomitant]
     Active Substance: METFORMIN HYDROCHLORIDE
  11. PEPCID [Concomitant]
     Active Substance: FAMOTIDINE
  12. Senekot [Concomitant]
  13. TRAMADOL [Concomitant]
     Active Substance: TRAMADOL

REACTIONS (7)
  - Nausea [None]
  - Vomiting [None]
  - Abdominal pain [None]
  - Biliary colic [None]
  - Cholelithiasis [None]
  - Cholecystitis [None]
  - Hepatic steatosis [None]

NARRATIVE: CASE EVENT DATE: 20220531
